FAERS Safety Report 5824033-3 (Version None)
Quarter: 2008Q3

REPORT INFORMATION
  Report Type: 
  Country: None (occurrence: None)
  Receive Date: 20080728
  Receipt Date: 20080721
  Transmission Date: 20090109
  Serious: Yes (Hospitalization)
  Sender: FDA-Public Use
  Company Number: FR-BRISTOL-MYERS SQUIBB COMPANY-14274278

PATIENT
  Age: 29 Year
  Sex: Female

DRUGS (1)
  1. SPRYCEL [Suspect]
     Route: 048
     Dates: start: 20071101, end: 20080603

REACTIONS (2)
  - RENAL FAILURE [None]
  - THROMBOTIC MICROANGIOPATHY [None]
